FAERS Safety Report 6821643-1 (Version None)
Quarter: 2010Q3

REPORT INFORMATION
  Report Type: 
  Country: None (occurrence: None)
  Receive Date: 20100707
  Receipt Date: 20090318
  Transmission Date: 20110219
  Serious: No
  Sender: FDA-Public Use
  Company Number: US-PFIZER INC-2009155572

PATIENT
  Sex: Female
  Weight: 53.1 kg

DRUGS (3)
  1. ZOLOFT [Suspect]
     Indication: DEPRESSION
     Dosage: 100 MG, 1X/DAY
     Dates: start: 20070401
  2. SYNTHROID [Concomitant]
     Dosage: 50 UG, UNK
  3. ALENDRONATE [Concomitant]
     Dosage: 70 MG, WEEKLY

REACTIONS (1)
  - LOW DENSITY LIPOPROTEIN INCREASED [None]
